FAERS Safety Report 11539025 (Version 1)
Quarter: 2015Q3

REPORT INFORMATION
  Report Type: Spontaneous
  Country: US (occurrence: None)
  Receive Date: 20150922
  Receipt Date: 20150922
  Transmission Date: 20151125
  Serious: Yes (Disabling)
  Sender: FDA-Public Use
  Company Number: None

PATIENT
  Age: 69 Year
  Sex: Male
  Weight: 74.84 kg

DRUGS (4)
  1. ADALAT CC [Concomitant]
     Active Substance: NIFEDIPINE
  2. CARDURA [Concomitant]
     Active Substance: DOXAZOSIN MESYLATE
  3. VITAMIN D [Concomitant]
     Active Substance: CHOLECALCIFEROL
  4. XARELTO [Suspect]
     Active Substance: RIVAROXABAN
     Indication: PULMONARY EMBOLISM
     Route: 048
     Dates: start: 20150504, end: 20150720

REACTIONS (8)
  - Dizziness [None]
  - Apparent death [None]
  - Blood pressure increased [None]
  - Tinnitus [None]
  - Anxiety [None]
  - Mood altered [None]
  - Chest pain [None]
  - Asthenia [None]

NARRATIVE: CASE EVENT DATE: 20150601
